FAERS Safety Report 9893285 (Version 1)
Quarter: 2014Q1

REPORT INFORMATION
  Report Type: Spontaneous
  Country: US (occurrence: US)
  Receive Date: 20140213
  Receipt Date: 20140213
  Transmission Date: 20141002
  Serious: Yes (Hospitalization, Other)
  Sender: FDA-Public Use
  Company Number: US-AMGEN-USASP2014008886

PATIENT
  Age: 80 Year
  Sex: Female

DRUGS (12)
  1. PROLIA [Suspect]
     Indication: OSTEOPENIA
     Dosage: 60 MG, UNK
     Route: 065
  2. GABAPENTIN [Concomitant]
     Indication: RESTLESS LEGS SYNDROME
  3. LEVODOPA [Concomitant]
     Indication: RESTLESS LEGS SYNDROME
  4. MIRAPEX [Concomitant]
  5. LEXAPRO                            /01588501/ [Concomitant]
  6. WELLBUTRIN [Concomitant]
  7. METFORMIN [Concomitant]
  8. SUPER B COMPLEX                    /01995301/ [Concomitant]
  9. VITAMIN C                          /00008001/ [Concomitant]
     Dosage: UNK UNK, BID
  10. CALCIUM [Concomitant]
  11. VITAMIN D                          /00107901/ [Concomitant]
     Dosage: 2000 UNK, BID
  12. MAGNESIUM [Concomitant]
     Dosage: UNK UNK, BID

REACTIONS (7)
  - Renal cell carcinoma [Unknown]
  - Upper limb fracture [Unknown]
  - Femur fracture [Unknown]
  - Fall [Unknown]
  - Mobility decreased [Unknown]
  - Muscle tightness [Unknown]
  - Pain in extremity [Unknown]
